FAERS Safety Report 7704283-1 (Version None)
Quarter: 2011Q3

REPORT INFORMATION
  Report Type: 
  Country: None (occurrence: None)
  Receive Date: 20110823
  Receipt Date: 20110816
  Transmission Date: 20111222
  Serious: Yes (Other)
  Sender: FDA-Public Use
  Company Number: PHEH2011US01719

PATIENT
  Age: 60 Year
  Sex: Female

DRUGS (11)
  1. OGEN [Suspect]
     Dosage: UNK UKN, UNK
  2. LEVOXYL [Concomitant]
     Dosage: 100 UG, UNK
  3. PREMARIN [Suspect]
     Dosage: UNK UKN, UNK
  4. XANAX [Concomitant]
     Dosage: 45 MG
  5. LORTAB [Suspect]
     Dosage: 10 MG, UNK
  6. XYZAL [Concomitant]
     Dosage: 5 MG
  7. VIVELLE-DOT [Suspect]
     Dosage: 0.075 MG, UNK
     Route: 062
  8. SINGULAIR [Concomitant]
     Dosage: 10 MG
  9. VALTREX [Concomitant]
     Dosage: 500 MG
  10. LISINOPRIL [Concomitant]
     Dosage: 2.5 MG, AS NEEDED
  11. VITAMINS NOS [Concomitant]
     Dosage: UNK UKN, UNK

REACTIONS (8)
  - BLOOD PRESSURE FLUCTUATION [None]
  - LABILE BLOOD PRESSURE [None]
  - ANAL CANCER [None]
  - ARTHRITIS [None]
  - HOT FLUSH [None]
  - HYPERSENSITIVITY [None]
  - BACK INJURY [None]
  - APPLICATION SITE BLEEDING [None]
